FAERS Safety Report 16303351 (Version 3)
Quarter: 2019Q4

REPORT INFORMATION
  Report Type: Spontaneous
  Country: US (occurrence: US)
  Receive Date: 20190513
  Receipt Date: 20191011
  Transmission Date: 20200122
  Serious: Yes (Other)
  Sender: FDA-Public Use
  Company Number: US-BRISTOL-MYERS SQUIBB COMPANY-BMS-2019-044394

PATIENT
  Age: 56 Year
  Sex: Female
  Weight: 52.16 kg

DRUGS (2)
  1. OPDIVO [Suspect]
     Active Substance: NIVOLUMAB
     Indication: SQUAMOUS CELL CARCINOMA OF LUNG
     Dosage: 52 MILLIGRAM, Q3WK
     Route: 042
     Dates: start: 20190421
  2. YERVOY [Suspect]
     Active Substance: IPILIMUMAB
     Indication: SQUAMOUS CELL CARCINOMA OF LUNG
     Dosage: 150 MILLIGRAM, Q3WK
     Route: 042
     Dates: start: 20190421

REACTIONS (7)
  - Pneumonia [Unknown]
  - Hypotension [Unknown]
  - Intentional product use issue [Unknown]
  - Malaise [Unknown]
  - Pneumonitis [Unknown]
  - Asthenia [Unknown]
  - Dyspnoea [Unknown]
